FAERS Safety Report 6590946-0 (Version None)
Quarter: 2010Q1

REPORT INFORMATION
  Report Type: 
  Country: None (occurrence: None)
  Receive Date: 20100219
  Receipt Date: 20100210
  Transmission Date: 20100710
  Serious: Yes (Hospitalization)
  Sender: FDA-Public Use
  Company Number: JP-JNJFOC-20091200353

PATIENT
  Sex: Male
  Weight: 63 kg

DRUGS (19)
  1. REMICADE [Suspect]
     Indication: RHEUMATOID ARTHRITIS
     Route: 042
     Dates: start: 20090512
  2. REMICADE [Suspect]
     Route: 042
     Dates: start: 20090512
  3. REMICADE [Suspect]
     Route: 042
     Dates: start: 20090512
  4. REMICADE [Suspect]
     Route: 042
     Dates: start: 20090512
  5. PREDNISOLONE [Suspect]
     Indication: RHEUMATOID ARTHRITIS
     Route: 048
  6. RHEUMATREX [Suspect]
     Indication: RHEUMATOID ARTHRITIS
     Route: 048
  7. PREDONINE [Suspect]
     Indication: RHEUMATOID ARTHRITIS
     Route: 048
  8. ONEALFA [Concomitant]
     Indication: OSTEOPOROSIS
     Dosage: ^1 RG^
     Route: 048
  9. PREDONINE [Concomitant]
     Route: 041
  10. PREDONINE [Concomitant]
     Route: 041
  11. PREDONINE [Concomitant]
     Route: 041
  12. PREDONINE [Concomitant]
     Route: 041
  13. NU-LOTAN [Concomitant]
     Indication: HYPERTENSION
     Route: 048
  14. GASTER D [Concomitant]
     Indication: GASTRODUODENAL ULCER
     Route: 048
  15. CELECOX [Concomitant]
     Indication: RHEUMATOID ARTHRITIS
     Route: 048
  16. NORVASC [Concomitant]
     Indication: HYPERTENSION
     Route: 048
  17. BREDININ [Concomitant]
     Indication: RHEUMATOID ARTHRITIS
     Route: 048
  18. FOSAMAC [Concomitant]
     Indication: OSTEOPOROSIS
     Route: 048
  19. FOLIAMIN [Concomitant]
     Indication: FOLATE DEFICIENCY
     Route: 048

REACTIONS (3)
  - HERPES ZOSTER [None]
  - PNEUMONIA BACTERIAL [None]
  - PNEUMONIA STAPHYLOCOCCAL [None]
